FAERS Safety Report 11415240 (Version 1)
Quarter: 2015Q3

REPORT INFORMATION
  Report Type: Spontaneous
  Country: US (occurrence: None)
  Receive Date: 20150824
  Receipt Date: 20150824
  Transmission Date: 20151125
  Serious: Yes (Other)
  Sender: FDA-Public Use
  Company Number: None

PATIENT
  Age: 68 Year
  Sex: Male
  Weight: 72.58 kg

DRUGS (6)
  1. PICATO GEL [Suspect]
     Active Substance: INGENOL MEBUTATE
     Indication: ACTINIC KERATOSIS
     Dosage: ONE APPLICATION ONCE DAILY X 3 DAYS TOPICALLY TO AFFECTED AREA
     Route: 061
     Dates: start: 20150820, end: 20150820
  2. FEXOFENADINE [Concomitant]
     Active Substance: FEXOFENADINE\FEXOFENADINE HYDROCHLORIDE
  3. VITAMIN D3 [Concomitant]
     Active Substance: CHOLECALCIFEROL
  4. FLAXSEED [Concomitant]
     Active Substance: FLAX SEED
  5. OMEPERAZOLE [Concomitant]
  6. RED YEAST RICE [Concomitant]
     Active Substance: DIETARY SUPPLEMENT

REACTIONS (4)
  - Application site ulcer [None]
  - Application site discharge [None]
  - Application site scab [None]
  - Application site pain [None]

NARRATIVE: CASE EVENT DATE: 20150820
